FAERS Safety Report 5846127-9 (Version None)
Quarter: 2008Q3

REPORT INFORMATION
  Report Type: 
  Country: None (occurrence: None)
  Receive Date: 20080814
  Receipt Date: 20080724
  Transmission Date: 20090109
  Serious: Yes (Other)
  Sender: FDA-Public Use
  Company Number: CH-MERCK-0807CHE00004

PATIENT
  Age: 23 Year
  Sex: Female
  Weight: 53 kg

DRUGS (4)
  1. INVANZ [Suspect]
     Indication: INFECTION
     Route: 041
     Dates: start: 20080624, end: 20080626
  2. URAPIDIL [Concomitant]
     Indication: HYPERTENSION
     Route: 048
     Dates: start: 20080620, end: 20080626
  3. FENTANYL [Concomitant]
     Indication: PAIN
     Route: 041
     Dates: start: 20080625, end: 20080626
  4. ACETAMINOPHEN [Concomitant]
     Indication: PAIN
     Route: 042
     Dates: start: 20080624, end: 20080626

REACTIONS (1)
  - HYPOGLYCAEMIA [None]
